FAERS Safety Report 21460013 (Version 1)
Quarter: 2022Q4

REPORT INFORMATION
  Report Type: Spontaneous
  Country: GB (occurrence: GB)
  Receive Date: 20221014
  Receipt Date: 20221014
  Transmission Date: 20230113
  Serious: Yes (Hospitalization)
  Sender: FDA-Public Use
  Company Number: GB-CDSU_IT-GB-MEN-084422

PATIENT
  Age: 60 Year
  Sex: Female

DRUGS (2)
  1. RANEXA [Suspect]
     Active Substance: RANOLAZINE
     Indication: Angina pectoris
     Dosage: 750 MG, BID
     Route: 048
     Dates: start: 202206
  2. ISOSORBIDE MONONITRATE [Concomitant]
     Active Substance: ISOSORBIDE MONONITRATE
     Indication: Angina pectoris
     Dosage: UNKNOWN DOSE AND FREQUENCY
     Route: 048

REACTIONS (3)
  - Fall [Recovered/Resolved]
  - Hyponatraemia [Unknown]
  - Dizziness [Unknown]

NARRATIVE: CASE EVENT DATE: 20220101
